FAERS Safety Report 19467465 (Version 1)
Quarter: 2021Q2

REPORT INFORMATION
  Report Type: Spontaneous
  Country: US (occurrence: US)
  Receive Date: 20210627
  Receipt Date: 20210627
  Transmission Date: 20210717
  Serious: Yes (Hospitalization)
  Sender: FDA-Public Use
  Company Number: None

PATIENT
  Sex: Male

DRUGS (1)
  1. DOFETILIDE. [Suspect]
     Active Substance: DOFETILIDE
     Indication: ATRIAL FIBRILLATION
     Route: 048
     Dates: start: 20190610

REACTIONS (6)
  - Illness [None]
  - Gastrointestinal infection [None]
  - Diarrhoea [None]
  - Dyspnoea [None]
  - Pain in extremity [None]
  - Asthenia [None]
